FAERS Safety Report 24362282 (Version 1)
Quarter: 2024Q3

REPORT INFORMATION
  Report Type: Spontaneous
  Country: US (occurrence: None)
  Receive Date: 20240925
  Receipt Date: 20240925
  Transmission Date: 20241017
  Serious: Yes (Life-Threatening, Hospitalization)
  Sender: Public
  Company Number: None

PATIENT
  Age: 71 Year
  Sex: Male
  Weight: 74.25 kg

DRUGS (6)
  1. LISINOPRIL [Suspect]
     Active Substance: LISINOPRIL
     Indication: Hypertension
     Dosage: OTHER QUANTITY : 1 TABLET(S);?
     Route: 048
     Dates: start: 19880901, end: 20240915
  2. LIPITOR [Concomitant]
     Active Substance: ATORVASTATIN CALCIUM
  3. B12 [Concomitant]
  4. MAGNESIUM [Concomitant]
     Active Substance: MAGNESIUM
  5. COENZYME Q10 [Concomitant]
     Active Substance: DIETARY SUPPLEMENT\UBIDECARENONE
  6. MULTIVITAMIN SENIOR [Concomitant]

REACTIONS (6)
  - Product label issue [None]
  - Lip swelling [None]
  - Nasal congestion [None]
  - Pain [None]
  - Swelling face [None]
  - Oropharyngeal pain [None]

NARRATIVE: CASE EVENT DATE: 20240915
